FAERS Safety Report 14241129 (Version 2)
Quarter: 2018Q1

REPORT INFORMATION
  Report Type: Spontaneous
  Country: US (occurrence: US)
  Receive Date: 20171130
  Receipt Date: 20180319
  Transmission Date: 20180508
  Serious: No
  Sender: FDA-Public Use
  Company Number: US-PFIZER INC-2017512232

PATIENT
  Age: 72 Year
  Sex: Male

DRUGS (2)
  1. SUTENT [Suspect]
     Active Substance: SUNITINIB MALATE
     Indication: RENAL CANCER
     Dosage: 50 MG, CYCLIC (28 DAYS ON/7 DAYS OFF)
     Dates: start: 20171114
  2. SUTENT [Suspect]
     Active Substance: SUNITINIB MALATE
     Dosage: 50 MG, UNK
     Dates: start: 20171114

REACTIONS (7)
  - Blood pressure increased [Unknown]
  - Pain [Unknown]
  - Oral pain [Unknown]
  - Nausea [Unknown]
  - Arthralgia [Unknown]
  - Gout [Unknown]
  - Bacterial infection [Unknown]

NARRATIVE: CASE EVENT DATE: 201711
